FAERS Safety Report 8605975-2 (Version None)
Quarter: 2012Q3

REPORT INFORMATION
  Report Type: 
  Country: None (occurrence: None)
  Receive Date: 20120820
  Receipt Date: 20120813
  Transmission Date: 20120928
  Serious: Yes (Hospitalization, Other)
  Sender: FDA-Public Use
  Company Number: BR-PFIZER INC-2012197073

PATIENT
  Age: 82 Year
  Sex: Female

DRUGS (1)
  1. LATANOPROST [Suspect]
     Indication: CATARACT
     Dosage: ONE DROP EACH EYE, TWICE A DAY)
     Route: 047

REACTIONS (2)
  - BLOOD PRESSURE DECREASED [None]
  - OFF LABEL USE [None]
